FAERS Safety Report 6020709-6 (Version None)
Quarter: 2008Q4

REPORT INFORMATION
  Report Type: 
  Country: None (occurrence: None)
  Receive Date: 20081222
  Receipt Date: 20081205
  Transmission Date: 20090506
  Serious: Yes (Hospitalization)
  Sender: FDA-Public Use
  Company Number: MPS1-1000144

PATIENT
  Age: 6 Year
  Sex: Male
  Weight: 20 kg

DRUGS (1)
  1. ALDURAZYME [Suspect]
     Indication: MUCOPOLYSACCHARIDOSIS I
     Dates: start: 20041228, end: 20081205

REACTIONS (6)
  - DIARRHOEA [None]
  - INFUSION RELATED REACTION [None]
  - PYREXIA [None]
  - SINUSITIS [None]
  - TACHYCARDIA [None]
  - TACHYPNOEA [None]
